FAERS Safety Report 17521847 (Version 1)
Quarter: 2020Q1

REPORT INFORMATION
  Report Type: Spontaneous
  Country: CN (occurrence: CN)
  Receive Date: 20200310
  Receipt Date: 20200310
  Transmission Date: 20200409
  Serious: Yes (Other)
  Sender: FDA-Public Use
  Company Number: NVSC2020CN049522

PATIENT
  Age: 80 Year
  Sex: Male

DRUGS (1)
  1. COSENTYX [Suspect]
     Active Substance: SECUKINUMAB
     Indication: PSORIASIS
     Dosage: 300 MG, QW (FIRST FIVE WEEKS, 300MG/WEEK)
     Route: 058
     Dates: start: 20200113

REACTIONS (2)
  - Blister [Not Recovered/Not Resolved]
  - Discharge [Unknown]

NARRATIVE: CASE EVENT DATE: 20200130
